FAERS Safety Report 23529880 (Version 2)
Quarter: 2024Q1

REPORT INFORMATION
  Report Type: Spontaneous
  Country: US (occurrence: US)
  Receive Date: 20240216
  Receipt Date: 20240314
  Transmission Date: 20240410
  Serious: No
  Sender: FDA-Public Use
  Company Number: US-AMGEN-USASP2024032387

PATIENT
  Age: 81 Year
  Sex: Female
  Weight: 62.132 kg

DRUGS (4)
  1. PROLIA [Suspect]
     Active Substance: DENOSUMAB
     Indication: Osteoporosis postmenopausal
     Dosage: 60 MILLIGRAM, Q6MO
     Route: 058
     Dates: start: 20230503
  2. ASPIRIN [Concomitant]
     Active Substance: ASPIRIN
     Dosage: 81 MILLIGRAM
  3. MOMETASONE [Concomitant]
     Active Substance: MOMETASONE
     Dosage: 0.1 PERCENT
     Route: 061
  4. BYSTOLIC [Concomitant]
     Active Substance: NEBIVOLOL HYDROCHLORIDE

REACTIONS (11)
  - Skin reaction [Not Recovered/Not Resolved]
  - Acne [Not Recovered/Not Resolved]
  - Actinic keratosis [Unknown]
  - Solar lentigo [Unknown]
  - Seborrhoeic keratosis [Unknown]
  - Melanocytic naevus [Unknown]
  - Haemangioma of skin [Unknown]
  - Photodermatosis [Unknown]
  - Purpura senile [Unknown]
  - Skin abrasion [Unknown]
  - Dermatitis [Not Recovered/Not Resolved]
